FAERS Safety Report 9668896 (Version 3)
Quarter: 2014Q2

REPORT INFORMATION
  Report Type: Report from Study
  Country: NL (occurrence: NL)
  Receive Date: 20131105
  Receipt Date: 20140613
  Transmission Date: 20141212
  Serious: Yes (Hospitalization)
  Sender: FDA-Public Use
  Company Number: PHHY2013NL124908

PATIENT
  Age: 80 Year
  Sex: Female

DRUGS (6)
  1. ACLASTA [Suspect]
     Indication: OSTEOPOROSIS
     Dosage: 5 MG, ONCE EVERY 52 WEEKS
     Route: 042
     Dates: start: 20111111
  2. ACLASTA [Suspect]
     Dosage: 5 MG, ONCE EVERY 52 WEEKS
     Route: 042
     Dates: start: 20121116
  3. ACLASTA [Suspect]
     Dosage: UNK
     Dates: start: 2013
  4. PREDNISONE [Concomitant]
     Dosage: UNK
  5. LABETALOL [Concomitant]
     Dosage: UNK
  6. HCT [Concomitant]
     Dosage: UNK
     Dates: start: 201310

REACTIONS (6)
  - Cerebrovascular accident [Recovered/Resolved]
  - Cerebral haemorrhage [Unknown]
  - Haemorrhagic stroke [Unknown]
  - Motor dysfunction [Unknown]
  - Speech disorder [Unknown]
  - Aphasia [Unknown]
